FAERS Safety Report 16813458 (Version 2)
Quarter: 2019Q3

REPORT INFORMATION
  Report Type: Spontaneous
  Country: DK (occurrence: DK)
  Receive Date: 20190917
  Receipt Date: 20190919
  Transmission Date: 20191005
  Serious: Yes (Hospitalization)
  Sender: FDA-Public Use
  Company Number: PHHY2019DK210428

PATIENT
  Age: 76 Year
  Sex: Female
  Weight: 74 kg

DRUGS (15)
  1. FURIX (FUROSEMIDE) [Suspect]
     Active Substance: FUROSEMIDE
     Dosage: 375 OT, UNK
     Route: 048
  2. BERODUAL [Suspect]
     Active Substance: FENOTEROL HYDROBROMIDE\IPRATROPIUM BROMIDE
     Indication: PAIN
     Dosage: 1.25 OT, UNK
     Route: 055
     Dates: start: 20190810, end: 20190811
  3. ONDANSETRON [Suspect]
     Active Substance: ONDANSETRON
     Indication: NAUSEA
     Dosage: 4 OT, UNK
     Route: 048
     Dates: start: 20190812, end: 20190815
  4. HEPARIN SODIUM. [Suspect]
     Active Substance: HEPARIN SODIUM
     Indication: PRODUCT USED FOR UNKNOWN INDICATION
     Dosage: 500 OT, UNK
     Route: 042
  5. AMOXILLIN [Suspect]
     Active Substance: AMOXICILLIN
     Indication: PNEUMONIA
     Dosage: 1500 OT, UNK
     Route: 048
     Dates: start: 20190816, end: 20190822
  6. PIPERACILLIN. [Suspect]
     Active Substance: PIPERACILLIN SODIUM
     Indication: PRODUCT USED FOR UNKNOWN INDICATION
     Dosage: 8 OT, UNK
     Route: 042
     Dates: start: 20190809, end: 20190816
  7. CEFUROXIM [Suspect]
     Active Substance: CEFUROXIME
     Dosage: 1500 OT, UNK
     Route: 042
  8. FURIX (FUROSEMIDE) [Suspect]
     Active Substance: FUROSEMIDE
     Indication: PRODUCT USED FOR UNKNOWN INDICATION
     Dosage: 500 OT, UNK
     Route: 048
     Dates: start: 20190812, end: 20190813
  9. ONDANSETRON [Suspect]
     Active Substance: ONDANSETRON
     Dosage: 4 UNK, UNK
     Route: 042
     Dates: start: 20190812, end: 20190813
  10. CEFUROXIM [Suspect]
     Active Substance: CEFUROXIME
     Indication: PRODUCT USED FOR UNKNOWN INDICATION
     Dosage: 750 OT, UNK
     Route: 042
     Dates: start: 20190807, end: 20190809
  11. MORFIN (MORPHINE) [Suspect]
     Active Substance: MORPHINE
     Indication: PAIN
     Dosage: 10 OT, UNK
     Route: 048
     Dates: start: 20190809, end: 20190812
  12. FRAGMIN [Suspect]
     Active Substance: DALTEPARIN SODIUM
     Indication: PRODUCT USED FOR UNKNOWN INDICATION
     Dosage: 500 OT, UNK
     Route: 058
     Dates: start: 20190807, end: 20190815
  13. FURIX (FUROSEMIDE) [Suspect]
     Active Substance: FUROSEMIDE
     Dosage: 750 OT, UNK
     Route: 048
     Dates: start: 20190813, end: 20190814
  14. TAZOBACTAM [Suspect]
     Active Substance: TAZOBACTAM
     Indication: PRODUCT USED FOR UNKNOWN INDICATION
     Dosage: 1 OT, UNK
     Route: 042
     Dates: start: 20190809, end: 20190816
  15. PANODIL [Suspect]
     Active Substance: ACETAMINOPHEN
     Indication: PRODUCT USED FOR UNKNOWN INDICATION
     Dosage: 1000 OT, UNK
     Route: 048
     Dates: start: 20190809, end: 20190816

REACTIONS (2)
  - Condition aggravated [Recovered/Resolved]
  - Intermittent claudication [Recovered/Resolved]

NARRATIVE: CASE EVENT DATE: 201908
